FAERS Safety Report 23107063 (Version 1)
Quarter: 2023Q4

REPORT INFORMATION
  Report Type: Spontaneous
  Country: DE (occurrence: DE)
  Receive Date: 20231026
  Receipt Date: 20231026
  Transmission Date: 20240109
  Serious: Yes (Death, Other)
  Sender: FDA-Public Use
  Company Number: DE-JNJFOC-20230636152

PATIENT
  Sex: Female

DRUGS (3)
  1. ADALIMUMAB [Suspect]
     Active Substance: ADALIMUMAB\ISOPROPYL ALCOHOL
     Indication: Arthritis
     Dosage: UNK
     Route: 065
  2. AZATHIOPRINE [Suspect]
     Active Substance: AZATHIOPRINE
     Indication: Product used for unknown indication
     Dosage: UNK
     Route: 065
  3. STELARA [Suspect]
     Active Substance: USTEKINUMAB
     Indication: Crohn^s disease
     Dosage: UNK (PROVIDE THE REASON WHY LOT NUMBER WAS NOT AVAILABLE: DISCARDED)
     Route: 058
     Dates: end: 2020

REACTIONS (4)
  - Death [Fatal]
  - Breast cancer [Unknown]
  - Drug ineffective [Unknown]
  - Enteropathic spondylitis [Unknown]
